FAERS Safety Report 20007873 (Version 1)
Quarter: 2021Q4

REPORT INFORMATION
  Report Type: Spontaneous
  Country: US (occurrence: US)
  Receive Date: 20211028
  Receipt Date: 20211028
  Transmission Date: 20220303
  Serious: Yes (Other)
  Sender: FDA-Public Use
  Company Number: US-ROCHE-2944244

PATIENT
  Age: 48 Year
  Sex: Female
  Weight: 88.08 kg

DRUGS (9)
  1. OCREVUS [Suspect]
     Active Substance: OCRELIZUMAB
     Indication: Secondary progressive multiple sclerosis
     Dosage: YES
     Route: 065
     Dates: start: 20210312
  2. CLONAZEPAM [Suspect]
     Active Substance: CLONAZEPAM
     Indication: Pain
     Dosage: YES
     Route: 048
     Dates: start: 2004
  3. GABAPENTIN [Concomitant]
     Active Substance: GABAPENTIN
     Indication: Pain
     Dosage: BEDTIME
     Route: 048
     Dates: start: 2018
  4. DULOXETINE [Concomitant]
     Active Substance: DULOXETINE
     Indication: Pain
     Route: 048
     Dates: start: 2018
  5. OXYBUTYNIN. [Concomitant]
     Active Substance: OXYBUTYNIN CHLORIDE
     Indication: Incontinence
     Route: 048
     Dates: start: 2007
  6. PRAMIPEXOLE [Concomitant]
     Active Substance: PRAMIPEXOLE
     Indication: Restless legs syndrome
     Route: 048
     Dates: start: 2000
  7. TIZANIDINE [Concomitant]
     Active Substance: TIZANIDINE
     Indication: Pain
     Dosage: USUALLY TAKES 1/DAY
     Route: 048
     Dates: start: 2018
  8. ESOMEPRAZOLE. [Concomitant]
     Active Substance: ESOMEPRAZOLE MAGNESIUM
     Indication: Dyspepsia
     Route: 048
     Dates: start: 202109
  9. SOLU-MEDROL [Concomitant]
     Active Substance: METHYLPREDNISOLONE SODIUM SUCCINATE
     Route: 042

REACTIONS (4)
  - Limb discomfort [Not Recovered/Not Resolved]
  - Hiatus hernia [Unknown]
  - Secondary progressive multiple sclerosis [Recovered/Resolved]
  - Visual impairment [Unknown]

NARRATIVE: CASE EVENT DATE: 20210501
